FAERS Safety Report 6240646-1 (Version None)
Quarter: 2009Q2

REPORT INFORMATION
  Report Type: 
  Country: None (occurrence: None)
  Receive Date: 20090623
  Receipt Date: 20081125
  Transmission Date: 20091009
  Serious: No
  Sender: FDA-Public Use
  Company Number: US-ASTRAZENECA-2008UW26389

PATIENT
  Age: 76 Year
  Sex: Female

DRUGS (11)
  1. PULMICORT-100 [Suspect]
     Indication: CHRONIC OBSTRUCTIVE PULMONARY DISEASE
     Dosage: BID
     Route: 055
     Dates: start: 20070101
  2. BROVANA [Suspect]
     Indication: CHRONIC OBSTRUCTIVE PULMONARY DISEASE
     Dosage: 15 UG/2 ML BID
     Route: 055
     Dates: start: 20070101
  3. PROTONIX [Concomitant]
  4. PREDNISONE TAB [Concomitant]
  5. ZOLOFT [Concomitant]
  6. XANAX [Concomitant]
  7. CALCIUM [Concomitant]
  8. VITAMINS [Concomitant]
  9. COMBIVENT [Concomitant]
  10. XOPENEX [Concomitant]
     Route: 055
     Dates: start: 20050101, end: 20070101
  11. IPRATROPIUM BROMIDE [Concomitant]
     Dates: start: 20050101, end: 20070101

REACTIONS (3)
  - BLOOD PRESSURE INCREASED [None]
  - FATIGUE [None]
  - HYPOTENSION [None]
